FAERS Safety Report 5775563-4 (Version None)
Quarter: 2008Q2

REPORT INFORMATION
  Report Type: 
  Country: None (occurrence: None)
  Receive Date: 20080617
  Receipt Date: 20080609
  Transmission Date: 20081010
  Serious: Yes (Death, Life-Threatening, Hospitalization, Other)
  Sender: FDA-Public Use
  Company Number: JP-SANOFI-SYNTHELABO-A01200805009

PATIENT
  Sex: Male
  Weight: 45 kg

DRUGS (22)
  1. NEOPHYLLIN INJECTION [Concomitant]
     Route: 042
     Dates: start: 20080425, end: 20080429
  2. ZYVOX [Concomitant]
     Route: 042
     Dates: start: 20080424, end: 20080428
  3. FRAGMIN [Concomitant]
     Route: 042
     Dates: start: 20080423, end: 20080430
  4. MIDAZOLAM HCL [Concomitant]
     Indication: ANALGESIA
     Route: 042
     Dates: start: 20080423, end: 20080430
  5. MORPHINE HCL ELIXIR [Concomitant]
     Indication: ANALGESIA
     Route: 042
     Dates: start: 20080423, end: 20080430
  6. REMINARON [Concomitant]
     Route: 042
     Dates: start: 20080423, end: 20080430
  7. LASIX [Concomitant]
     Route: 042
     Dates: start: 20080422, end: 20080427
  8. ALBUMIN [Concomitant]
     Route: 042
     Dates: start: 20080421, end: 20080423
  9. ELASPOL [Concomitant]
     Route: 042
     Dates: start: 20080419, end: 20080430
  10. PREDOPA [Concomitant]
     Route: 042
     Dates: start: 20080418, end: 20080430
  11. PROPOFOL [Concomitant]
     Indication: ANALGESIA
     Route: 042
     Dates: start: 20080418, end: 20080423
  12. BISOLVON [Concomitant]
     Route: 042
     Dates: start: 20080417, end: 20080430
  13. MAGNESIUM SULFATE [Concomitant]
     Indication: PREMEDICATION
     Route: 042
     Dates: start: 20071029, end: 20080403
  14. CALCICOL [Concomitant]
     Indication: PREMEDICATION
     Route: 042
     Dates: start: 20071029, end: 20080403
  15. SEROTONE [Concomitant]
     Indication: PREMEDICATION
     Route: 042
     Dates: start: 20070226, end: 20070522
  16. SEROTONE [Concomitant]
     Route: 042
     Dates: start: 20071029, end: 20080403
  17. DECADRON [Concomitant]
     Indication: PREMEDICATION
     Route: 042
     Dates: start: 20070226, end: 20070521
  18. DECADRON [Concomitant]
     Route: 042
     Dates: start: 20071029, end: 20080403
  19. FLUOROURACIL [Concomitant]
     Indication: LARGE INTESTINE CARCINOMA
     Dosage: FOLFOX-6, C1: 26-FEB-07; 600 MG=425.5 MG/M2 IV BOLUS THEN 3600 MG=2553.2 MG/M2 CONTINUOUS INFUSION
     Route: 040
     Dates: start: 20080403, end: 20080403
  20. FLUOROURACIL [Concomitant]
     Route: 041
     Dates: start: 20080403, end: 20080403
  21. ELPLAT [Suspect]
     Indication: LARGE INTESTINE CARCINOMA
     Route: 041
     Dates: start: 20080403, end: 20080403
  22. ISOVORIN [Concomitant]
     Indication: LARGE INTESTINE CARCINOMA
     Dosage: FOLFOX-6, C1: 26-FEB-07
     Route: 041
     Dates: start: 20080403, end: 20080403

REACTIONS (5)
  - ACUTE RESPIRATORY FAILURE [None]
  - HAEMOGLOBIN DECREASED [None]
  - INTERSTITIAL LUNG DISEASE [None]
  - NEUTROPHIL COUNT DECREASED [None]
  - WHITE BLOOD CELL COUNT DECREASED [None]
